FAERS Safety Report 23076717 (Version 1)
Quarter: 2023Q4

REPORT INFORMATION
  Report Type: Report from Study
  Country: US (occurrence: US)
  Receive Date: 20231017
  Receipt Date: 20231017
  Transmission Date: 20240110
  Serious: Yes (Hospitalization, Other)
  Sender: FDA-Public Use
  Company Number: US-ABBVIE-5451207

PATIENT
  Sex: Male

DRUGS (2)
  1. HUMIRA [Suspect]
     Active Substance: ADALIMUMAB
     Indication: Psoriasis
     Route: 058
     Dates: start: 20191013
  2. HUMIRA [Suspect]
     Active Substance: ADALIMUMAB
     Route: 058
     Dates: start: 20151130

REACTIONS (8)
  - Leprosy [Not Recovered/Not Resolved]
  - Psoriasis [Unknown]
  - Nervous system disorder [Not Recovered/Not Resolved]
  - Limb injury [Recovering/Resolving]
  - Wound infection [Unknown]
  - Immunodeficiency [Not Recovered/Not Resolved]
  - Insomnia [Unknown]
  - Electric shock sensation [Unknown]
